FAERS Safety Report 5930446-1 (Version None)
Quarter: 2008Q4

REPORT INFORMATION
  Report Type: 
  Country: None (occurrence: None)
  Receive Date: 20081022
  Receipt Date: 20081013
  Transmission Date: 20090506
  Serious: Yes (Other)
  Sender: FDA-Public Use
  Company Number: 2008BI027496

PATIENT
  Age: 43 Year
  Sex: Female

DRUGS (3)
  1. TYSABRI [Suspect]
     Indication: MULTIPLE SCLEROSIS
     Dosage: 300 MG;QM;IV
     Route: 042
     Dates: start: 20080301
  2. CON MEDS [Concomitant]
  3. PREV MEDS [Concomitant]

REACTIONS (4)
  - CONDITION AGGRAVATED [None]
  - ISCHAEMIA [None]
  - MULTIPLE SCLEROSIS [None]
  - OPTIC NEURITIS [None]
